FAERS Safety Report 14740914 (Version 6)
Quarter: 2019Q3

REPORT INFORMATION
  Report Type: Spontaneous
  Country: US (occurrence: US)
  Receive Date: 20180410
  Receipt Date: 20190805
  Transmission Date: 20191004
  Serious: Yes (Other)
  Sender: FDA-Public Use
  Company Number: US-GLAXOSMITHKLINE-US2018GSK060867

PATIENT
  Sex: Male

DRUGS (8)
  1. LANSOPRAZOLE. [Suspect]
     Active Substance: LANSOPRAZOLE
     Indication: PRODUCT USED FOR UNKNOWN INDICATION
     Dosage: UNK
     Route: 065
  2. PANTOPRAZOLE [Suspect]
     Active Substance: PANTOPRAZOLE
     Indication: PRODUCT USED FOR UNKNOWN INDICATION
     Dosage: UNK
     Route: 065
  3. PREVACID [Suspect]
     Active Substance: LANSOPRAZOLE
     Indication: GASTROOESOPHAGEAL REFLUX DISEASE
     Dosage: 15 MG, QD
     Route: 065
  4. OMEPRAZOLE. [Suspect]
     Active Substance: OMEPRAZOLE
     Dosage: 40 MG, BID
     Route: 065
  5. ESOMEPRAZOLE. [Suspect]
     Active Substance: ESOMEPRAZOLE MAGNESIUM
     Indication: PRODUCT USED FOR UNKNOWN INDICATION
     Dosage: UNK
     Route: 065
  6. OMEPRAZOLE. [Suspect]
     Active Substance: OMEPRAZOLE
     Indication: PRODUCT USED FOR UNKNOWN INDICATION
     Dosage: 20 MG, QD
     Route: 048
  7. PREVACID [Suspect]
     Active Substance: LANSOPRAZOLE
     Indication: GASTROOESOPHAGEAL REFLUX DISEASE
     Dosage: 40 MG, QD
     Route: 065
  8. OMEPRAZOLE. [Suspect]
     Active Substance: OMEPRAZOLE
     Indication: PRODUCT USED FOR UNKNOWN INDICATION
     Dosage: 40 MG, QD
     Route: 048

REACTIONS (24)
  - Diabetic nephropathy [Unknown]
  - Acute kidney injury [Unknown]
  - Nocturia [Unknown]
  - Renal impairment [Unknown]
  - Renal injury [Unknown]
  - Renal failure [Unknown]
  - Urinary incontinence [Unknown]
  - Chronic kidney disease [Unknown]
  - End stage renal disease [Unknown]
  - Polyuria [Unknown]
  - Dysuria [Unknown]
  - Renal cyst [Unknown]
  - Nephrolithiasis [Unknown]
  - Nephropathy [Unknown]
  - Dialysis [Not Recovered/Not Resolved]
  - Nephrogenic anaemia [Unknown]
  - Proteinuria [Unknown]
  - Hypertensive nephropathy [Unknown]
  - Blood creatinine increased [Unknown]
  - Haematuria [Unknown]
  - Oliguria [Unknown]
  - Hydronephrosis [Unknown]
  - Renal tubular necrosis [Unknown]
  - Blood urea increased [Unknown]
